FAERS Safety Report 22010611 (Version 2)
Quarter: 2023Q1

REPORT INFORMATION
  Report Type: Spontaneous
  Country: NZ (occurrence: NZ)
  Receive Date: 20230220
  Receipt Date: 20230327
  Transmission Date: 20230418
  Serious: Yes (Death, Other)
  Sender: FDA-Public Use
  Company Number: NZ-MYLANLABS-2023M1015962

PATIENT
  Age: 88 Year
  Sex: Male

DRUGS (11)
  1. CLOZARIL [Suspect]
     Active Substance: CLOZAPINE
     Indication: Schizophrenia
     Dosage: 12.5 MILLIGRAM, QD (NOCTE)
     Route: 048
     Dates: start: 20230123, end: 20230125
  2. CLOZARIL [Suspect]
     Active Substance: CLOZAPINE
     Indication: Bipolar disorder
     Dosage: 25 MILLIGRAM, QD (NOCTE)
     Route: 048
     Dates: start: 20230125, end: 20230131
  3. CLOZARIL [Suspect]
     Active Substance: CLOZAPINE
     Indication: Dementia
     Dosage: 37.5 MILLIGRAM, QD (NOCTE)
     Route: 048
     Dates: start: 20230131, end: 20230201
  4. CLOZARIL [Suspect]
     Active Substance: CLOZAPINE
     Indication: Aggression
     Dosage: 50 MILLIGRAM, QD (NOCTE)
     Route: 048
     Dates: start: 20230201, end: 20230214
  5. LITHIUM [Concomitant]
     Active Substance: LITHIUM
     Dosage: UNK
     Route: 065
  6. LORAZEPAM [Concomitant]
     Active Substance: LORAZEPAM
     Dosage: 0.25 MILLIGRAM, QID
     Route: 048
  7. QUETIAPINE [Concomitant]
     Active Substance: QUETIAPINE
     Dosage: UNK (100 MG / 50 MG / 100 MG)
     Route: 065
  8. CETIRIZINE [Concomitant]
     Active Substance: CETIRIZINE HYDROCHLORIDE
     Dosage: UNK
     Route: 065
  9. FOLIC ACID [Concomitant]
     Active Substance: FOLIC ACID
     Dosage: UNK
     Route: 065
  10. LITHIUM CARBONATE [Concomitant]
     Active Substance: LITHIUM CARBONATE
     Dosage: UNK (VARYING DOSES)
     Route: 065
     Dates: end: 20230214
  11. LEVOMEPROMAZINE [Concomitant]
     Active Substance: LEVOMEPROMAZINE
     Dosage: 25 MILLIGRAM UP TO TDS
     Route: 065

REACTIONS (5)
  - Dementia [Fatal]
  - Troponin increased [Fatal]
  - Myocardial infarction [Unknown]
  - Myocarditis [Unknown]
  - Blood test abnormal [Unknown]

NARRATIVE: CASE EVENT DATE: 20230214
